FAERS Safety Report 15153795 (Version 2)
Quarter: 2018Q4

REPORT INFORMATION
  Report Type: Spontaneous
  Country: US (occurrence: US)
  Receive Date: 20180717
  Receipt Date: 20181016
  Transmission Date: 20190204
  Serious: No
  Sender: FDA-Public Use
  Company Number: US-SA-2018SA190874

PATIENT

DRUGS (1)
  1. ALLEGRA ALLERGY [Suspect]
     Active Substance: FEXOFENADINE HYDROCHLORIDE
     Indication: RESPIRATORY DISORDER
     Dosage: UNK, UNK
     Route: 065
     Dates: start: 201802, end: 201804

REACTIONS (2)
  - Cough [Unknown]
  - Therapeutic response decreased [Unknown]
